FAERS Safety Report 10160881 (Version 1)
Quarter: 2014Q2

REPORT INFORMATION
  Report Type: Spontaneous
  Country: CH (occurrence: CH)
  Receive Date: 20140508
  Receipt Date: 20140508
  Transmission Date: 20141212
  Serious: Yes (Other)
  Sender: FDA-Public Use
  Company Number: PHHY2014CH054058

PATIENT
  Age: 22 Year
  Sex: Male
  Weight: 75 kg

DRUGS (10)
  1. CYTARABINE SANDOZ [Suspect]
     Dosage: 100 MG/M2, CYCLIC
     Route: 037
     Dates: start: 20041112, end: 20050418
  2. FLUDARABINE [Suspect]
     Indication: ACUTE MYELOID LEUKAEMIA RECURRENT
     Dosage: 30 MG/M2, UNK
  3. DAUNORUBICIN [Suspect]
     Indication: ACUTE MYELOID LEUKAEMIA
     Dosage: 411 MG, DAY 1, 3, 5
     Route: 042
     Dates: start: 20041112, end: 2005
  4. ETOPOPHOS [Suspect]
     Indication: ACUTE MYELOID LEUKAEMIA
     Dosage: 100 MG/M2, CYCLIC
     Route: 042
     Dates: start: 20041112, end: 2005
  5. NOVANTRON [Suspect]
     Indication: ACUTE MYELOID LEUKAEMIA
     Dosage: 12 MG/M2, CYCLIC
     Route: 042
     Dates: start: 2005, end: 2005
  6. ENDOXAN [Suspect]
     Indication: ACUTE MYELOID LEUKAEMIA RECURRENT
     Route: 042
     Dates: start: 20060303, end: 20060303
  7. BUSULFEX [Suspect]
     Indication: ACUTE MYELOID LEUKAEMIA RECURRENT
     Dates: start: 20060303, end: 20060303
  8. GRANULOCYTE COLONY-STIMULATING FACTOR NOS [Concomitant]
     Indication: ACUTE MYELOID LEUKAEMIA RECURRENT
     Dosage: 5 UG/KG, UNK
  9. ALKERAN [Concomitant]
     Indication: ACUTE MYELOID LEUKAEMIA RECURRENT
     Route: 048
     Dates: start: 20060303, end: 20060303
  10. GEMTUZUMAB OZOGAMICIN [Concomitant]
     Indication: ACUTE MYELOID LEUKAEMIA
     Dosage: 3 MG/M2, UNK
     Route: 042
     Dates: start: 20041112, end: 2005

REACTIONS (2)
  - Cardiotoxicity [Unknown]
  - Ejection fraction decreased [Unknown]
